FAERS Safety Report 23119292 (Version 1)
Quarter: 2023Q4

REPORT INFORMATION
  Report Type: Spontaneous
  Country: IT (occurrence: IT)
  Receive Date: 20231028
  Receipt Date: 20231028
  Transmission Date: 20240110
  Serious: Yes (Death, Other)
  Sender: FDA-Public Use
  Company Number: IT-AMGEN-ITASP2023190910

PATIENT

DRUGS (2)
  1. PANITUMUMAB [Suspect]
     Active Substance: PANITUMUMAB
     Indication: Colorectal cancer metastatic
     Dosage: UNK
     Route: 065
  2. BEVACIZUMAB [Suspect]
     Active Substance: BEVACIZUMAB
     Indication: Colorectal cancer metastatic
     Dosage: UNK
     Route: 065

REACTIONS (7)
  - Death [Fatal]
  - Hepatic failure [Fatal]
  - Ascites [Unknown]
  - Subdiaphragmatic abscess [Unknown]
  - Colorectal cancer metastatic [Unknown]
  - Pleural effusion [Unknown]
  - Therapy partial responder [Unknown]
